FAERS Safety Report 7265923-7 (Version None)
Quarter: 2011Q1

REPORT INFORMATION
  Report Type: 
  Country: None (occurrence: None)
  Receive Date: 20110131
  Receipt Date: 20110124
  Transmission Date: 20110831
  Serious: Yes (Hospitalization)
  Sender: FDA-Public Use
  Company Number: D0064391A

PATIENT
  Sex: Male

DRUGS (9)
  1. HAVRIX [Suspect]
     Indication: PROPHYLAXIS
     Route: 065
     Dates: start: 20010508, end: 20010508
  2. VAQTA [Concomitant]
     Indication: PROPHYLAXIS
     Route: 065
     Dates: start: 20000816, end: 20000816
  3. TD PUR [Concomitant]
     Route: 065
     Dates: start: 19981103, end: 19981103
  4. IPV VIRELON [Concomitant]
     Route: 065
     Dates: start: 19990611, end: 19990611
  5. TD PUR [Concomitant]
     Indication: PROPHYLAXIS
     Route: 065
     Dates: start: 19980928, end: 19980928
  6. TD PUR [Concomitant]
     Route: 065
     Dates: start: 19990611, end: 19990611
  7. ITRACONAZOLE [Suspect]
     Route: 048
  8. IPV VIRELON [Concomitant]
     Indication: PROPHYLAXIS
     Route: 065
     Dates: start: 19980928, end: 19980928
  9. STAMARIL [Concomitant]
     Indication: PROPHYLAXIS
     Route: 065
     Dates: start: 20000816, end: 20000816

REACTIONS (10)
  - DIARRHOEA [None]
  - HYPOAESTHESIA [None]
  - MULTIPLE SCLEROSIS [None]
  - VACCINATION COMPLICATION [None]
  - FATIGUE [None]
  - VERTIGO [None]
  - MYELITIS [None]
  - PARAPLEGIA [None]
  - MALAISE [None]
  - COORDINATION ABNORMAL [None]
